FAERS Safety Report 13430976 (Version 2)
Quarter: 2017Q2

REPORT INFORMATION
  Report Type: Spontaneous
  Country: JP (occurrence: JP)
  Receive Date: 20170412
  Receipt Date: 20170413
  Transmission Date: 20170830
  Serious: Yes (Hospitalization, Other)
  Sender: FDA-Public Use
  Company Number: JP-PFIZER INC-2017154462

PATIENT
  Age: 77 Year
  Sex: Male

DRUGS (1)
  1. LYRICA [Suspect]
     Active Substance: PREGABALIN
     Dosage: UNK

REACTIONS (8)
  - Pain [Unknown]
  - Tumour invasion [Unknown]
  - Neoplasm progression [Unknown]
  - Urinary retention [Unknown]
  - Abdominal pain lower [Unknown]
  - Pain in extremity [Unknown]
  - Ileus [Unknown]
  - Dysuria [Unknown]
